FAERS Safety Report 23562207 (Version 6)
Quarter: 2025Q1

REPORT INFORMATION
  Report Type: Spontaneous
  Country: CZ (occurrence: CZ)
  Receive Date: 20240226
  Receipt Date: 20250205
  Transmission Date: 20250409
  Serious: Yes (Hospitalization)
  Sender: JOHNSON AND JOHNSON
  Company Number: CZ-MYLANLABS-2024M1014202

PATIENT
  Sex: Male

DRUGS (14)
  1. SIMPONI [Suspect]
     Active Substance: GOLIMUMAB
     Indication: Psoriatic arthropathy
     Route: 058
     Dates: start: 201301, end: 201501
  2. ETANERCEPT [Suspect]
     Active Substance: ETANERCEPT
     Indication: Psoriatic arthropathy
     Dates: start: 201106, end: 201301
  3. ETANERCEPT [Suspect]
     Active Substance: ETANERCEPT
     Route: 065
  4. INFLIXIMAB [Suspect]
     Active Substance: INFLIXIMAB
     Indication: Psoriatic arthropathy
     Route: 042
     Dates: start: 201503, end: 201912
  5. METHYLPREDNISOLONE SODIUM SUCCINATE [Suspect]
     Active Substance: METHYLPREDNISOLONE SODIUM SUCCINATE
     Indication: Psoriatic arthropathy
  6. METHYLPREDNISOLONE SODIUM SUCCINATE [Suspect]
     Active Substance: METHYLPREDNISOLONE SODIUM SUCCINATE
  7. METHYLPREDNISOLONE SODIUM SUCCINATE [Suspect]
     Active Substance: METHYLPREDNISOLONE SODIUM SUCCINATE
     Route: 065
  8. SULFASALAZINE [Suspect]
     Active Substance: SULFASALAZINE
     Indication: Rheumatoid arthritis
  9. SULFASALAZINE [Suspect]
     Active Substance: SULFASALAZINE
  10. SULFASALAZINE [Suspect]
     Active Substance: SULFASALAZINE
     Route: 065
  11. LEFLUNOMIDE [Suspect]
     Active Substance: LEFLUNOMIDE
     Indication: Psoriatic arthropathy
  12. LEFLUNOMIDE [Suspect]
     Active Substance: LEFLUNOMIDE
  13. LEFLUNOMIDE [Suspect]
     Active Substance: LEFLUNOMIDE
     Route: 065
  14. IXEKIZUMAB [Concomitant]
     Active Substance: IXEKIZUMAB
     Indication: Rheumatoid arthritis
     Dates: start: 202106

REACTIONS (3)
  - Gastrointestinal haemorrhage [Recovered/Resolved]
  - Overdose [Recovered/Resolved]
  - No adverse event [Unknown]
